FAERS Safety Report 10488470 (Version 1)
Quarter: 2014Q4

REPORT INFORMATION
  Report Type: Report from Study
  Country: US (occurrence: US)
  Receive Date: 20141002
  Receipt Date: 20141002
  Transmission Date: 20150528
  Serious: Yes (Hospitalization, Other)
  Sender: FDA-Public Use
  Company Number: US-ROCHE-1466632

PATIENT
  Sex: Female
  Weight: 16.6 kg

DRUGS (16)
  1. DDAVP [Concomitant]
     Active Substance: DESMOPRESSIN ACETATE
     Route: 058
  2. NUTROPIN AQ [Suspect]
     Active Substance: SOMATROPIN
     Indication: GROWTH HORMONE DEFICIENCY
     Route: 058
  3. NUTROPIN AQ [Suspect]
     Active Substance: SOMATROPIN
     Indication: BODY HEIGHT BELOW NORMAL
  4. KEPPRA [Concomitant]
     Active Substance: LEVETIRACETAM
     Route: 065
  5. DDAVP [Concomitant]
     Active Substance: DESMOPRESSIN ACETATE
     Dosage: HS
     Route: 058
  6. CORTEF [Concomitant]
     Active Substance: HYDROCORTISONE
     Indication: HYPOGLYCAEMIA
     Dosage: 1/2 TABLET,  AM
     Route: 048
  7. DDAVP [Concomitant]
     Active Substance: DESMOPRESSIN ACETATE
     Dosage: AM
     Route: 058
  8. HYDROCORTISONE. [Concomitant]
     Active Substance: HYDROCORTISONE
     Dosage: 1/2 TAB,  AM
     Route: 065
  9. NUTROPIN AQ [Suspect]
     Active Substance: SOMATROPIN
     Indication: HYPOPITUITARISM
  10. ALBUTEROL. [Concomitant]
     Active Substance: ALBUTEROL
  11. NUTROPIN AQ [Suspect]
     Active Substance: SOMATROPIN
     Indication: DIABETES INSIPIDUS
  12. CORTEF [Concomitant]
     Active Substance: HYDROCORTISONE
     Dosage: PM
     Route: 048
  13. CORTEF [Concomitant]
     Active Substance: HYDROCORTISONE
     Dosage: QID
     Route: 048
  14. HYDROCORTISONE. [Concomitant]
     Active Substance: HYDROCORTISONE
     Dosage: HS
     Route: 065
  15. PULMICORT TURBUHALER [Concomitant]
     Active Substance: BUDESONIDE
     Dosage: PRN
     Route: 065
  16. ATROPINE [Concomitant]
     Active Substance: ATROPINE
     Dosage: QD 4/MON
     Route: 065

REACTIONS (18)
  - Malaise [Unknown]
  - Sleep disorder [Unknown]
  - Vomiting [Unknown]
  - Psychomotor hyperactivity [Unknown]
  - Hyperhidrosis [Unknown]
  - Upper-airway cough syndrome [Unknown]
  - Blood glucose decreased [Unknown]
  - Disturbance in attention [Unknown]
  - Joint dislocation [Unknown]
  - Ear pain [Unknown]
  - Hypoglycaemia [Unknown]
  - Limb asymmetry [Unknown]
  - Asthenia [Unknown]
  - Eating disorder [Unknown]
  - Abnormal behaviour [Unknown]
  - Urinary incontinence [Unknown]
  - Fatigue [Unknown]
  - Toe walking [Unknown]
